FAERS Safety Report 5679593-2 (Version None)
Quarter: 2008Q1

REPORT INFORMATION
  Report Type: 
  Country: None (occurrence: None)
  Receive Date: 20080325
  Receipt Date: 20080313
  Transmission Date: 20080703
  Serious: Yes (Hospitalization)
  Sender: FDA-Public Use
  Company Number: IN-PFIZER INC-2008025035

PATIENT
  Age: 50 Year
  Sex: Male

DRUGS (2)
  1. MAGNEX [Suspect]
     Indication: LUNG INFECTION
     Route: 042
  2. AMIKACIN [Concomitant]
     Route: 042

REACTIONS (1)
  - INTERNATIONAL NORMALISED RATIO INCREASED [None]
